FAERS Safety Report 24557650 (Version 1)
Quarter: 2024Q4

REPORT INFORMATION
  Report Type: Spontaneous
  Country: BR (occurrence: BR)
  Receive Date: 20241028
  Receipt Date: 20241028
  Transmission Date: 20250114
  Serious: Yes (Other)
  Sender: ELI LILLY AND COMPANY
  Company Number: BR-ELI_LILLY_AND_COMPANY-BR202410013758

PATIENT
  Sex: Female

DRUGS (2)
  1. ABEMACICLIB [Suspect]
     Active Substance: ABEMACICLIB
     Indication: Product used for unknown indication
     Dosage: UNK, UNKNOWN
     Route: 048
  2. ABEMACICLIB [Suspect]
     Active Substance: ABEMACICLIB
     Dosage: UNK, UNKNOWN
     Route: 048

REACTIONS (2)
  - Confusional state [Recovered/Resolved]
  - Dizziness [Recovered/Resolved]
